FAERS Safety Report 11051045 (Version 1)
Quarter: 2015Q2

REPORT INFORMATION
  Report Type: Spontaneous
  Country: US (occurrence: None)
  Receive Date: 20150420
  Receipt Date: 20150420
  Transmission Date: 20150821
  Serious: No
  Sender: FDA-Public Use
  Company Number: None

PATIENT

DRUGS (2)
  1. PITOCIN [Suspect]
     Active Substance: OXYTOCIN
     Dosage: STRENGTH: 10 UNITS/ML  DOSAGE FORM: INJECTABLE   VIAL, 10 ML
  2. PITOCIN [Suspect]
     Active Substance: OXYTOCIN
     Dosage: INJECTABLE, 10 UNITS/ML, VIAL 10 ML

REACTIONS (1)
  - Product label issue [None]
